FAERS Safety Report 10227202 (Version 1)
Quarter: 2014Q2

REPORT INFORMATION
  Report Type: Spontaneous
  Country: US (occurrence: None)
  Receive Date: 20140606
  Receipt Date: 20140606
  Transmission Date: 20141212
  Serious: Yes (Life-Threatening)
  Sender: FDA-Public Use
  Company Number: FK201402072

PATIENT
  Age: 21 Year
  Sex: Male

DRUGS (2)
  1. PROPOFOL [Suspect]
     Indication: SEDATION
     Dosage: NOT OTHERWISE SPECIFIED
     Route: 042
  2. MDMA [Suspect]
     Indication: DRUG ABUSE

REACTIONS (7)
  - Rhabdomyolysis [None]
  - Disseminated intravascular coagulation [None]
  - Cerebral haemorrhage [None]
  - Hypertension [None]
  - Acute hepatic failure [None]
  - Renal failure [None]
  - Haemodialysis [None]
